FAERS Safety Report 9334897 (Version 1)
Quarter: 2013Q2

REPORT INFORMATION
  Report Type: Spontaneous
  Country: US (occurrence: US)
  Receive Date: 20130606
  Receipt Date: 20130606
  Transmission Date: 20140414
  Serious: No
  Sender: FDA-Public Use
  Company Number: US-AMGEN-USASP2013026444

PATIENT
  Age: 75 Year
  Sex: Female

DRUGS (10)
  1. PROLIA [Suspect]
     Indication: OSTEOPOROSIS POSTMENOPAUSAL
     Dosage: UNK
     Dates: start: 201210
  2. SYNTHROID [Concomitant]
  3. TOPROL [Concomitant]
     Dosage: 0.5 DF ONCE DAILY
  4. ASPIRIN [Concomitant]
     Dosage: 81 MG,ONCE DAILY
  5. PLAVIX [Concomitant]
     Dosage: 75 MG ONCE DAILY
  6. LISINOPRIL [Concomitant]
     Dosage: 5 MG, ONCE DAILY
  7. ZETIA [Concomitant]
  8. CALTRATE                           /07357001/ [Concomitant]
  9. VITAMIN D                          /00107901/ [Concomitant]
     Dosage: 2000 IU ONCE DAILY
  10. CENTRUM SILVER                     /02363801/ [Concomitant]

REACTIONS (1)
  - Back pain [Unknown]
